FAERS Safety Report 6792951-8 (Version None)
Quarter: 2010Q2

REPORT INFORMATION
  Report Type: 
  Country: None (occurrence: None)
  Receive Date: 20100624
  Receipt Date: 20090128
  Transmission Date: 20101027
  Serious: Yes (Other)
  Sender: FDA-Public Use
  Company Number: US-PFIZER INC-2008088158

PATIENT
  Age: 20 Year
  Sex: Female

DRUGS (4)
  1. GEODON [Suspect]
     Dosage: 80 MG, 2X/DAY
     Dates: start: 20080101, end: 20081001
  2. ATIVAN [Concomitant]
  3. PROZAC [Concomitant]
  4. LISDEXAMFETAMINE DIMESYLATE [Concomitant]

REACTIONS (1)
  - TARDIVE DYSKINESIA [None]
